FAERS Safety Report 13438054 (Version 1)
Quarter: 2017Q2

REPORT INFORMATION
  Report Type: Spontaneous
  Country: US (occurrence: US)
  Receive Date: 20170413
  Receipt Date: 20170413
  Transmission Date: 20170830
  Serious: No
  Sender: FDA-Public Use
  Company Number: US-BIOMARINAP-US-2017-113570

PATIENT
  Sex: Female
  Weight: 14.06 kg

DRUGS (1)
  1. KUVAN [Suspect]
     Active Substance: SAPROPTERIN DIHYDROCHLORIDE
     Indication: PHENYLKETONURIA
     Dosage: 300 MG, QD
     Route: 048
     Dates: start: 201601

REACTIONS (4)
  - Anxiety [Unknown]
  - Nervousness [Unknown]
  - Psychomotor hyperactivity [Unknown]
  - Depression [Unknown]
